FAERS Safety Report 6683166-2 (Version None)
Quarter: 2010Q2

REPORT INFORMATION
  Report Type: 
  Country: None (occurrence: None)
  Receive Date: 20100415
  Receipt Date: 20100406
  Transmission Date: 20101027
  Serious: Yes (Other)
  Sender: FDA-Public Use
  Company Number: DE-PFIZER INC-2010043104

PATIENT
  Sex: Male

DRUGS (1)
  1. ZOLOFT [Suspect]
     Indication: OBSESSIVE THOUGHTS
     Dosage: 50 MG (DAILY)
     Dates: start: 20091001, end: 20090101

REACTIONS (2)
  - DISTURBANCE IN ATTENTION [None]
  - NARCOLEPSY [None]
